FAERS Safety Report 9547410 (Version 1)
Quarter: 2013Q3

REPORT INFORMATION
  Report Type: Spontaneous
  Country: US (occurrence: US)
  Receive Date: 20130924
  Receipt Date: 20130924
  Transmission Date: 20140515
  Serious: Yes (Other)
  Sender: FDA-Public Use
  Company Number: US-009507513-1309USA007926

PATIENT
  Age: 83 Year
  Sex: Female
  Weight: 58.96 kg

DRUGS (6)
  1. TEMODAR [Suspect]
     Indication: MALIGNANT MELANOMA
     Dosage: 100 MG DAILY, 6 IN 6 WEEKS
     Route: 048
     Dates: start: 20130111
  2. THALOMID [Suspect]
     Indication: MALIGNANT MELANOMA
     Dosage: 50 MG, 4 CAPSULES DAILY AT BEDTIME
     Route: 048
     Dates: start: 20130206
  3. THALOMID [Suspect]
     Dosage: 200 MG, QD
     Route: 048
     Dates: start: 20130410
  4. THALOMID [Suspect]
     Dosage: 100 MG, QD
     Route: 048
     Dates: start: 201309
  5. THALOMID [Suspect]
     Dosage: 50 MG, QD
     Route: 048
     Dates: start: 201302
  6. THALOMID [Suspect]
     Dosage: 50 MG, DAILY AT BEDTIME
     Route: 048
     Dates: start: 2013

REACTIONS (2)
  - Pancytopenia [Recovered/Resolved]
  - Platelet transfusion [Unknown]
